FAERS Safety Report 4495483-5 (Version None)
Quarter: 2004Q4

REPORT INFORMATION
  Report Type: 
  Country: None (occurrence: None)
  Receive Date: 20041108
  Receipt Date: 20041027
  Transmission Date: 20050328
  Serious: Yes (Hospitalization)
  Sender: FDA-Public Use
  Company Number: FR-NOVOPROD-240145

PATIENT
  Age: 10 Year
  Sex: Male
  Weight: 30 kg

DRUGS (1)
  1. NORDITROPIN SIMPLEXX [Suspect]
     Indication: GROWTH HORMONE DEFICIENCY
     Dosage: 1.05 MG, QD
     Route: 058
     Dates: start: 20040315, end: 20041013

REACTIONS (1)
  - MYOSITIS [None]
